FAERS Safety Report 8218552-2 (Version None)
Quarter: 2012Q1

REPORT INFORMATION
  Report Type: 
  Country: None (occurrence: None)
  Receive Date: 20120306
  Receipt Date: 20110121
  Transmission Date: 20120608
  Serious: Yes (Hospitalization)
  Sender: FDA-Public Use
  Company Number: US-005858

PATIENT
  Age: 88 Year
  Sex: Female

DRUGS (3)
  1. ISOVUE-370 [Suspect]
     Indication: COMPUTERISED TOMOGRAM
     Dosage: 100ML ONCE  INTRAVENOUS (NOT OTHERWISE SPECIFIED)
     Route: 042
     Dates: start: 20110117, end: 20110117
  2. ISOVUE-370 [Suspect]
     Indication: HEPATIC HAEMATOMA
     Dosage: 100ML ONCE  INTRAVENOUS (NOT OTHERWISE SPECIFIED)
     Route: 042
     Dates: start: 20110117, end: 20110117
  3. ISOVUE-370 [Suspect]
     Indication: ABDOMINAL PAIN UPPER
     Dosage: 100ML ONCE  INTRAVENOUS (NOT OTHERWISE SPECIFIED)
     Route: 042
     Dates: start: 20110117, end: 20110117

REACTIONS (1)
  - CARDIO-RESPIRATORY ARREST [None]
